FAERS Safety Report 24675757 (Version 1)
Quarter: 2024Q4

REPORT INFORMATION
  Report Type: Spontaneous
  Country: US (occurrence: US)
  Receive Date: 20241128
  Receipt Date: 20241128
  Transmission Date: 20250115
  Serious: No
  Sender: ABBVIE
  Company Number: US-ABBVIE-6016672

PATIENT
  Age: 6 Year
  Sex: Female

DRUGS (1)
  1. CREON [Suspect]
     Active Substance: PANCRELIPASE AMYLASE\PANCRELIPASE LIPASE\PANCRELIPASE PROTEASE
     Indication: Pancreatic failure
     Dosage: THREE WITH MEALS AND TWO WITH SNACK?FORM STRENGTH UNITS: 12000 UNITS
     Route: 048

REACTIONS (2)
  - Diarrhoea [Unknown]
  - Abdominal pain [Unknown]
